FAERS Safety Report 17585124 (Version 1)
Quarter: 2020Q1

REPORT INFORMATION
  Report Type: Spontaneous
  Country: TN (occurrence: TN)
  Receive Date: 20200326
  Receipt Date: 20200326
  Transmission Date: 20200409
  Serious: Yes (Death)
  Sender: FDA-Public Use
  Company Number: TN-PFIZER INC-2020127894

PATIENT
  Age: 58 Year
  Sex: Male

DRUGS (2)
  1. SOLU-MEDROL [Suspect]
     Active Substance: METHYLPREDNISOLONE SODIUM SUCCINATE
     Indication: GLOMERULONEPHRITIS MEMBRANOUS
     Dosage: 500 MG, UNK
     Route: 040
  2. SOLU-MEDROL [Suspect]
     Active Substance: METHYLPREDNISOLONE SODIUM SUCCINATE
     Indication: COMPLEMENT FACTOR C3 INCREASED
     Dosage: UNK (FULL DOSE STEROIDS)

REACTIONS (1)
  - Pleuropericarditis [Fatal]
